FAERS Safety Report 14754805 (Version 6)
Quarter: 2018Q2

REPORT INFORMATION
  Report Type: Spontaneous
  Country: US (occurrence: US)
  Receive Date: 20180413
  Receipt Date: 20180605
  Transmission Date: 20180711
  Serious: Yes (Hospitalization)
  Sender: FDA-Public Use
  Company Number: US-CELGENEUS-USA-20180403413

PATIENT
  Sex: Male

DRUGS (6)
  1. POMALYST [Suspect]
     Active Substance: POMALIDOMIDE
     Dosage: 2 MILLIGRAM
     Route: 048
     Dates: start: 20180205
  2. SODIUM CHLORIDE. [Concomitant]
     Active Substance: SODIUM CHLORIDE
     Indication: PRODUCT USED FOR UNKNOWN INDICATION
     Dosage: .9 PERCENT
     Route: 065
  3. POMALYST [Suspect]
     Active Substance: POMALIDOMIDE
     Indication: PLASMA CELL MYELOMA
     Dosage: 4 MILLIGRAM
     Route: 048
     Dates: start: 201612
  4. POMALYST [Suspect]
     Active Substance: POMALIDOMIDE
     Dosage: 2 MILLIGRAM
     Route: 048
     Dates: start: 201712
  5. POMALYST [Suspect]
     Active Substance: POMALIDOMIDE
     Indication: RHEUMATOID ARTHRITIS
     Dosage: 3 MILLIGRAM
     Route: 048
     Dates: start: 201705
  6. POMALYST [Suspect]
     Active Substance: POMALIDOMIDE
     Dosage: 4 MILLIGRAM
     Route: 048
     Dates: start: 20180202

REACTIONS (5)
  - Dyspnoea [Unknown]
  - Balance disorder [Not Recovered/Not Resolved]
  - Pyrexia [Unknown]
  - Arterial disorder [Not Recovered/Not Resolved]
  - Infection [Unknown]
